FAERS Safety Report 5038135-5 (Version None)
Quarter: 2006Q2

REPORT INFORMATION
  Report Type: 
  Country: None (occurrence: None)
  Receive Date: 20060626
  Receipt Date: 20060616
  Transmission Date: 20061013
  Serious: No
  Sender: FDA-Public Use
  Company Number: TPA2003A01735

PATIENT
  Age: 52 Year
  Sex: Female

DRUGS (5)
  1. ACTOS [Suspect]
     Indication: DIABETES MELLITUS
     Dosage: PER ORAL
     Route: 048
  2. AVANDIA [Suspect]
  3. GLUCOPHAGE [Concomitant]
  4. INSULIN [Concomitant]
  5. GLYBURIDE [Concomitant]

REACTIONS (10)
  - BLOOD PRESSURE INCREASED [None]
  - CONDITION AGGRAVATED [None]
  - DYSPNOEA [None]
  - FLUID RETENTION [None]
  - MACULAR OEDEMA [None]
  - PROTEINURIA [None]
  - RENAL FAILURE [None]
  - RETINAL ISCHAEMIA [None]
  - VISUAL ACUITY REDUCED [None]
  - WEIGHT INCREASED [None]
